FAERS Safety Report 5133069-X (Version None)
Quarter: 2006Q4

REPORT INFORMATION
  Report Type: 
  Country: None (occurrence: None)
  Receive Date: 20061023
  Receipt Date: 20061017
  Transmission Date: 20070319
  Serious: Yes (Hospitalization)
  Sender: FDA-Public Use
  Company Number: IN-GILEAD-2006-0010487

PATIENT
  Age: 28 Year
  Sex: Female

DRUGS (3)
  1. EMTRICITABINE [Suspect]
     Indication: HIV INFECTION
     Route: 048
     Dates: start: 20060919
  2. TENOFOVIR DISOPROXIL FUMARATE [Suspect]
     Indication: HIV INFECTION
     Route: 048
     Dates: start: 20060919
  3. EFAVIRENZ [Suspect]
     Indication: HIV INFECTION
     Route: 048
     Dates: start: 20060919

REACTIONS (3)
  - INTESTINAL OBSTRUCTION [None]
  - SMALL INTESTINAL OBSTRUCTION [None]
  - TUBERCULOSIS [None]
